FAERS Safety Report 9314635 (Version 1)
Quarter: 2013Q2

REPORT INFORMATION
  Report Type: Spontaneous
  Country: CN (occurrence: CN)
  Receive Date: 20130529
  Receipt Date: 20130529
  Transmission Date: 20140414
  Serious: Yes (Other)
  Sender: FDA-Public Use
  Company Number: CN-SANOFI-AVENTIS-2013SA053902

PATIENT
  Age: 19 Year
  Sex: Female
  Weight: 52 kg

DRUGS (4)
  1. STILNOX [Suspect]
     Indication: INSOMNIA
     Route: 048
     Dates: start: 20121214, end: 20121220
  2. ESCITALOPRAM [Concomitant]
     Dates: start: 20121129, end: 20121217
  3. ZOPICLONE [Concomitant]
     Indication: INSOMNIA
     Dates: start: 20121206, end: 20121213
  4. ARIPIPRAZOLE [Concomitant]
     Dates: start: 20121212, end: 20121214

REACTIONS (2)
  - Oculogyric crisis [Recovered/Resolved]
  - Gaze palsy [Recovered/Resolved]
